FAERS Safety Report 17665493 (Version 1)
Quarter: 2020Q2

REPORT INFORMATION
  Report Type: Spontaneous
  Country: US (occurrence: US)
  Receive Date: 20200413
  Receipt Date: 20200413
  Transmission Date: 20200713
  Serious: Yes (Hospitalization, Other)
  Sender: FDA-Public Use
  Company Number: None

PATIENT
  Age: 33 Year
  Sex: Female

DRUGS (26)
  1. GABAPENTIN. [Concomitant]
     Active Substance: GABAPENTIN
  2. MIRTAZAPINE. [Concomitant]
     Active Substance: MIRTAZAPINE
  3. PROMETHAZINE [Concomitant]
     Active Substance: PROMETHAZINE HYDROCHLORIDE
  4. CLONAZEPAM. [Concomitant]
     Active Substance: CLONAZEPAM
  5. HYDROXYZ PAM [Concomitant]
     Active Substance: HYDROXYZINE PAMOATE
  6. VALACYCLOVIR [Concomitant]
     Active Substance: VALACYCLOVIR HYDROCHLORIDE
  7. LAMOTRIGINE. [Concomitant]
     Active Substance: LAMOTRIGINE
  8. OLANZAPINE. [Concomitant]
     Active Substance: OLANZAPINE
  9. TEMAZEPAM. [Concomitant]
     Active Substance: TEMAZEPAM
  10. AUSTEDO [Suspect]
     Active Substance: DEUTETRABENAZINE
     Indication: DYSKINESIA
     Route: 048
     Dates: start: 20191106
  11. LIDO/PRILOCN [Concomitant]
  12. METRONIDAZOL [Concomitant]
     Active Substance: METRONIDAZOLE
  13. ZOLIPDEM ER [Concomitant]
  14. DIVALPROEX [Concomitant]
     Active Substance: DIVALPROEX SODIUM
  15. DULOXETINE. [Concomitant]
     Active Substance: DULOXETINE
  16. HALOPERIDOL. [Concomitant]
     Active Substance: HALOPERIDOL
  17. LEVETIRACETA [Concomitant]
  18. ONDANSETRON [Concomitant]
     Active Substance: ONDANSETRON
  19. BENZOTROPINE [Concomitant]
     Active Substance: BENZTROPINE
  20. KETOROLAC [Concomitant]
     Active Substance: KETOROLAC TROMETHAMINE
  21. SPIRONOLACT [Concomitant]
     Active Substance: SPIRONOLACTONE
  22. TRAZODONE [Concomitant]
     Active Substance: TRAZODONE HYDROCHLORIDE
  23. HYDROCO/APAP [Concomitant]
     Active Substance: ACETAMINOPHEN\HYDROCODONE
  24. NABUMETONE. [Concomitant]
     Active Substance: NABUMETONE
  25. BYSTOLIC [Concomitant]
     Active Substance: NEBIVOLOL HYDROCHLORIDE
  26. MOXIFLOXACIN. [Concomitant]
     Active Substance: MOXIFLOXACIN

REACTIONS (1)
  - Overdose [None]

NARRATIVE: CASE EVENT DATE: 20200412
